FAERS Safety Report 23218012 (Version 1)
Quarter: 2023Q4

REPORT INFORMATION
  Report Type: Report from Study
  Country: US (occurrence: US)
  Receive Date: 20231122
  Receipt Date: 20231122
  Transmission Date: 20240109
  Serious: Yes (Other)
  Sender: FDA-Public Use
  Company Number: US-JAZZ PHARMACEUTICALS-2023-US-004446

PATIENT
  Sex: Female

DRUGS (5)
  1. XYWAV [Suspect]
     Active Substance: CALCIUM OXYBATE\MAGNESIUM OXYBATE\POTASSIUM OXYBATE\SODIUM OXYBATE
     Indication: Narcolepsy
     Dosage: UNK
  2. FENTANYL [Suspect]
     Active Substance: FENTANYL\FENTANYL CITRATE
  3. BIOTIN [Concomitant]
     Active Substance: BIOTIN
  4. RITALIN [Concomitant]
     Active Substance: METHYLPHENIDATE HYDROCHLORIDE
     Dosage: 0000
     Dates: start: 20230618
  5. ACETAMINOPHEN\HYDROCODONE [Concomitant]
     Active Substance: ACETAMINOPHEN\HYDROCODONE
     Dosage: 0000
     Dates: start: 20230718

REACTIONS (8)
  - Surgery [Unknown]
  - Heart rate increased [Unknown]
  - Fibromyalgia [Unknown]
  - Pruritus [Unknown]
  - Trismus [Unknown]
  - Arthralgia [Unknown]
  - Product administration interrupted [Unknown]
  - Off label use [Unknown]
